FAERS Safety Report 5636952-1 (Version None)
Quarter: 2008Q1

REPORT INFORMATION
  Report Type: 
  Country: None (occurrence: None)
  Receive Date: 20080225
  Receipt Date: 20080219
  Transmission Date: 20080703
  Serious: Yes (Death)
  Sender: FDA-Public Use
  Company Number: DE-AVENTIS-200810462DE

PATIENT
  Age: 54 Year
  Sex: Female

DRUGS (59)
  1. NOVALGIN                           /00039501/ [Suspect]
     Indication: PAIN
     Route: 042
     Dates: start: 20050311, end: 20050311
  2. NOVALGIN                           /00039501/ [Suspect]
     Route: 042
     Dates: start: 20050316, end: 20050319
  3. NOVALGIN                           /00039501/ [Suspect]
     Route: 048
     Dates: start: 20050316, end: 20050316
  4. TELFAST                            /01314201/ [Suspect]
     Indication: PRURITUS
     Route: 048
     Dates: start: 20050302, end: 20050309
  5. CIPROBAY                           /00697202/ [Suspect]
     Dosage: DOSE: 1-0-1
     Route: 042
     Dates: start: 20050304, end: 20050316
  6. ALLOPURINOL [Suspect]
     Route: 048
     Dates: start: 20050314, end: 20050314
  7. ZOLDEM [Suspect]
     Dosage: DOSE: 0-0-1
     Route: 048
     Dates: start: 20050210, end: 20050222
  8. ZOLDEM [Suspect]
     Dosage: DOSE: 0-0-1
     Route: 048
     Dates: start: 20050307, end: 20050313
  9. ZOLDEM [Suspect]
     Dosage: DOSE: 0-0-1
     Route: 048
     Dates: start: 20050315, end: 20050315
  10. ZOLDEM [Suspect]
     Dosage: DOSE: 0-0-1
     Route: 048
     Dates: start: 20050317, end: 20050317
  11. ZOLDEM [Suspect]
     Dosage: DOSE: 0-0-1
     Route: 048
     Dates: start: 20050319, end: 20050319
  12. VALCYTE [Suspect]
     Route: 048
     Dates: start: 20050305, end: 20050305
  13. VALCYTE [Suspect]
     Route: 048
     Dates: start: 20050307, end: 20050307
  14. NEUPOGEN [Suspect]
     Indication: NEUTROPENIA
     Route: 042
     Dates: start: 20050309, end: 20050309
  15. UNAT                               /01036501/ [Suspect]
     Route: 048
     Dates: start: 20050313, end: 20050315
  16. DIOVAN HCT [Concomitant]
     Route: 048
     Dates: start: 20050127, end: 20050304
  17. DECORTIN [Concomitant]
     Dosage: DOSE: 2-0-0
     Route: 048
     Dates: start: 20050203, end: 20050316
  18. FORADIL [Concomitant]
     Indication: CHRONIC OBSTRUCTIVE PULMONARY DISEASE
     Dosage: DOSE: 1-0-1
     Route: 055
     Dates: start: 20050127, end: 20050317
  19. OXIS                               /00958001/ [Concomitant]
     Indication: CHRONIC OBSTRUCTIVE PULMONARY DISEASE
     Dosage: DOSE: 1-0-1
     Route: 055
     Dates: start: 20050127, end: 20050317
  20. OMEP [Concomitant]
     Route: 048
     Dates: start: 20050203, end: 20050317
  21. GENTAMICIN [Concomitant]
     Indication: ENDOCARDITIS
     Route: 042
     Dates: start: 20050202, end: 20050319
  22. VANCOMYCIN [Concomitant]
     Route: 042
     Dates: start: 20050127, end: 20050319
  23. FRAXIPARIN                         /00889603/ [Concomitant]
     Route: 058
     Dates: start: 20050127, end: 20050319
  24. BELOC                              /00376903/ [Concomitant]
     Dosage: DOSE: 1-0-1
     Route: 048
     Dates: start: 20050203, end: 20050319
  25. IMUREK                             /00001501/ [Concomitant]
     Route: 048
     Dates: start: 20050127, end: 20050319
  26. SODIUM CHLORIDE [Concomitant]
     Dosage: DOSE: 500-1000 ML
     Route: 041
     Dates: start: 20050127, end: 20050319
  27. SODIUM CHLORIDE [Concomitant]
     Dosage: DOSE: 1-1-1
     Route: 055
     Dates: start: 20050217, end: 20050224
  28. SODIUM CHLORIDE [Concomitant]
     Dosage: DOSE: 500-1000 ML
     Route: 041
     Dates: start: 20050127, end: 20050319
  29. SODIUM CHLORIDE [Concomitant]
     Dosage: DOSE: 1-1-1
     Route: 055
     Dates: start: 20050217, end: 20050224
  30. L-THYROXIN [Concomitant]
     Indication: HYPOTHYROIDISM
     Route: 048
     Dates: start: 20050127, end: 20050319
  31. RINGERS                            /00047801/ [Concomitant]
     Dosage: DOSE: 500-1000 ML
     Route: 041
     Dates: start: 20050127, end: 20050319
  32. ACETAMINOPHEN [Concomitant]
     Indication: PAIN
     Route: 048
     Dates: start: 20050304, end: 20050304
  33. HYDROCORTISONE [Concomitant]
     Indication: HYPOTENSION
     Dosage: DOSE QUANTITY: 100; DOSE UNIT: MILLIGRAM PER 24 HOURS
     Route: 042
     Dates: start: 20050304, end: 20050304
  34. RED BLOOD CELLS [Concomitant]
     Dosage: DOSE: 2X1
     Route: 042
     Dates: start: 20050312, end: 20050312
  35. NEORECORMON [Concomitant]
     Route: 042
     Dates: start: 20050312, end: 20050312
  36. NEORECORMON [Concomitant]
     Route: 042
     Dates: start: 20050315, end: 20050315
  37. NEORECORMON [Concomitant]
     Route: 042
     Dates: start: 20050317, end: 20050317
  38. NEORECORMON [Concomitant]
     Route: 042
     Dates: start: 20050319, end: 20050319
  39. TAVEGIL                            /00137201/ [Concomitant]
     Indication: PRURITUS
     Dosage: DOSE: 1-0-1
     Route: 048
     Dates: start: 20050224, end: 20050302
  40. TAVEGIL                            /00137201/ [Concomitant]
     Dosage: DOSE: 1-0-0
     Route: 042
     Dates: start: 20050316, end: 20050317
  41. CYMEVENE                           /00784202/ [Concomitant]
     Indication: INFECTION
     Route: 048
     Dates: start: 20050218, end: 20050222
  42. ACYCLOVIR [Concomitant]
     Route: 061
     Dates: start: 20050204, end: 20050223
  43. DECOSTRIOL [Concomitant]
     Route: 048
     Dates: start: 20050203, end: 20050223
  44. AMPHO-MORONAL [Concomitant]
     Dosage: DOSE: 2-2-2
     Route: 061
     Dates: start: 20050203, end: 20050224
  45. ACC BRAUSE [Concomitant]
     Route: 048
     Dates: start: 20050217, end: 20050224
  46. MAGNESIUM-VERLA [Concomitant]
     Dosage: DOSE: 5-0-0
     Route: 048
     Dates: start: 20050203, end: 20050224
  47. FLUVASTATIN [Concomitant]
     Route: 048
     Dates: start: 20050203, end: 20050227
  48. FLUVASTATIN [Concomitant]
     Route: 048
     Dates: start: 20050314, end: 20050314
  49. ZIENAM [Concomitant]
     Indication: ENDOCARDITIS
     Route: 042
     Dates: start: 20050217, end: 20050224
  50. ZIENAM [Concomitant]
     Route: 042
     Dates: start: 20050319, end: 20050319
  51. PARACODIN                          /00063002/ [Concomitant]
     Indication: PAIN
     Route: 048
     Dates: start: 20050222, end: 20050223
  52. LACTULOSE [Concomitant]
     Indication: CONSTIPATION
     Route: 048
     Dates: start: 20050223, end: 20050223
  53. LACTULOSE [Concomitant]
     Route: 048
     Dates: start: 20050303, end: 20050303
  54. BRONCHOFERTIGINHALAT (SALBUTAMOL) [Concomitant]
     Indication: CHRONIC OBSTRUCTIVE PULMONARY DISEASE
     Dosage: DOSE: 1-1-1
     Route: 055
     Dates: start: 20050224, end: 20050227
  55. THESIT                             /00669601/ [Concomitant]
     Indication: PRURITUS
     Route: 061
     Dates: start: 20050224, end: 20050224
  56. THESIT                             /00669601/ [Concomitant]
     Route: 061
     Dates: start: 20050302, end: 20050303
  57. SORBITOL [Concomitant]
     Indication: CONSTIPATION
     Dosage: DOSE: 1-0-0
     Route: 054
     Dates: start: 20050302, end: 20050302
  58. DERMATOP [Concomitant]
     Route: 061
     Dates: start: 20050302, end: 20050303
  59. LAXOBERAL [Concomitant]
     Indication: CONSTIPATION
     Dosage: DOSE: 1-0-0
     Route: 048
     Dates: start: 20050303, end: 20050303

REACTIONS (7)
  - BLISTER [None]
  - LIP EROSION [None]
  - MOUTH ULCERATION [None]
  - MUCOSAL EROSION [None]
  - OCULAR HYPERAEMIA [None]
  - RASH MACULAR [None]
  - TOXIC EPIDERMAL NECROLYSIS [None]
